FAERS Safety Report 8351077-2 (Version None)
Quarter: 2012Q2

REPORT INFORMATION
  Report Type: 
  Country: None (occurrence: None)
  Receive Date: 20120510
  Receipt Date: 20120508
  Transmission Date: 20120825
  Serious: Yes (Death, Other)
  Sender: FDA-Public Use
  Company Number: VE-PFIZER INC-2012106242

PATIENT
  Age: 82 Year
  Sex: Female

DRUGS (3)
  1. EUTHYROX [Concomitant]
     Indication: HYPOTHYROIDISM
     Dosage: 50 MG/G, ONCE DAILY
     Route: 048
  2. PLAVIX [Concomitant]
     Indication: ARTERIAL OCCLUSIVE DISEASE
     Dosage: 75 MG, ONCE DAILY
     Route: 048
  3. LIPITOR [Suspect]
     Indication: HYPERCHOLESTEROLAEMIA
     Dosage: 40 MG, ONCE DAILY
     Route: 048

REACTIONS (1)
  - PULMONARY OEDEMA [None]
